FAERS Safety Report 4612479-0 (Version None)
Quarter: 2005Q1

REPORT INFORMATION
  Report Type: 
  Country: None (occurrence: None)
  Receive Date: 20050316
  Receipt Date: 20050316
  Transmission Date: 20050727
  Serious: Yes (Disabling)
  Sender: FDA-Public Use
  Company Number: None

PATIENT
  Sex: Female

DRUGS (1)
  1. TIMOLOL 0.5% GFS [Suspect]
     Indication: OPEN ANGLE GLAUCOMA
     Dosage: ONE DROP Q AM O.S.
     Route: 047
     Dates: start: 20030825

REACTIONS (3)
  - EYE DISCHARGE [None]
  - PHARMACEUTICAL PRODUCT COMPLAINT [None]
  - VISION BLURRED [None]
